FAERS Safety Report 8272393-9 (Version None)
Quarter: 2012Q2

REPORT INFORMATION
  Report Type: 
  Country: None (occurrence: None)
  Receive Date: 20120410
  Receipt Date: 20120326
  Transmission Date: 20120825
  Serious: Yes (Other)
  Sender: FDA-Public Use
  Company Number: CHPA2012US005806

PATIENT
  Sex: Female

DRUGS (1)
  1. EXCEDRIN TENSION HEADACHE CAPLETS [Suspect]
     Indication: PAIN
     Dosage: 1-2 DF, UNK
     Route: 048

REACTIONS (5)
  - HERPES ZOSTER [None]
  - OFF LABEL USE [None]
  - FATIGUE [None]
  - DISCOMFORT [None]
  - UNDERDOSE [None]
